FAERS Safety Report 5660317-X (Version None)
Quarter: 2008Q1

REPORT INFORMATION
  Report Type: 
  Country: None (occurrence: None)
  Receive Date: 20080212
  Receipt Date: 20071023
  Transmission Date: 20080703
  Serious: Yes (Other)
  Sender: FDA-Public Use
  Company Number: US-WYE-H00882007

PATIENT
  Age: 31 Year
  Sex: Female

DRUGS (1)
  1. LYBREL [Suspect]
     Indication: CONTRACEPTION
     Dosage: 1 TABLET 1X PER 1 DAY, ORAL
     Route: 048
     Dates: start: 20070725, end: 20071001

REACTIONS (3)
  - LIBIDO DECREASED [None]
  - METRORRHAGIA [None]
  - VISUAL DISTURBANCE [None]
